FAERS Safety Report 8909536 (Version 2)
Quarter: 2012Q4

REPORT INFORMATION
  Report Type: 
  Country: FR (occurrence: FR)
  Receive Date: 20121115
  Receipt Date: 20121207
  Transmission Date: 20130627
  Serious: Yes (Other)
  Sender: FDA-Public Use
  Company Number: FR-EISAI INC-E3810-06067-SPO-FR

PATIENT
  Age: 49 Year
  Sex: Female

DRUGS (1)
  1. PARIET (RABEPRAZOLE) [Suspect]
     Indication: ULCER
     Route: 048
     Dates: start: 201210, end: 20121108

REACTIONS (2)
  - Urticaria [Recovered/Resolved]
  - Pruritus [Unknown]
